FAERS Safety Report 4554203-6 (Version None)
Quarter: 2005Q1

REPORT INFORMATION
  Report Type: 
  Country: None (occurrence: None)
  Receive Date: 20050118
  Receipt Date: 20041112
  Transmission Date: 20050727
  Serious: Yes (Other)
  Sender: FDA-Public Use
  Company Number: AU-BRISTOL-MYERS SQUIBB COMPANY-12766234

PATIENT
  Age: 16 Year
  Sex: Male
  Weight: 70 kg

DRUGS (3)
  1. ABILIFY [Suspect]
     Indication: DELUSION
     Dates: start: 20041020, end: 20041029
  2. FLUOXETINE [Concomitant]
     Indication: ANXIETY
     Dates: start: 20040817, end: 20041029
  3. ZYPREXA [Concomitant]
     Indication: DELUSION
     Route: 048
     Dates: start: 20040810, end: 20041026

REACTIONS (1)
  - SEROTONIN SYNDROME [None]
